FAERS Safety Report 9315640 (Version 4)
Quarter: 2013Q4

REPORT INFORMATION
  Report Type: Spontaneous
  Country: DE (occurrence: DE)
  Receive Date: 20130529
  Receipt Date: 20131003
  Transmission Date: 20140711
  Serious: Yes (Other)
  Sender: FDA-Public Use
  Company Number: DE-VERTEX PHARMACEUTICALS INC-2013-006534

PATIENT
  Age: 52 Year
  Sex: Female
  Weight: 78 kg

DRUGS (3)
  1. INCIVO [Suspect]
     Indication: HEPATITIS C
     Dosage: 2 DF, TID, TABLET
     Route: 048
     Dates: start: 20130515, end: 20130717
  2. RIBAVIRIN [Concomitant]
     Indication: HEPATITIS C
     Dosage: 1000 MG, QD
     Route: 048
     Dates: start: 20130515
  3. PEG INTERFERON [Concomitant]
     Indication: HEPATITIS C
     Dosage: 185 ?G, QD
     Dates: start: 20130515, end: 20130717

REACTIONS (2)
  - Glucose tolerance test abnormal [Recovered/Resolved]
  - Anaemia [Recovered/Resolved]
